FAERS Safety Report 6383594-9 (Version None)
Quarter: 2009Q4

REPORT INFORMATION
  Report Type: 
  Country: None (occurrence: None)
  Receive Date: 20091001
  Receipt Date: 20090924
  Transmission Date: 20100525
  Serious: Yes (Other)
  Sender: FDA-Public Use
  Company Number: GB-ROCHE-658764

PATIENT
  Age: 57 Year
  Sex: Female

DRUGS (8)
  1. TAMIFLU [Suspect]
     Indication: DRUG USE FOR UNKNOWN INDICATION
     Route: 065
     Dates: start: 20090716, end: 20090720
  2. FLECAINIDE ACETATE [Concomitant]
  3. BISOPROLOL FUMARATE [Concomitant]
  4. ASPIRIN [Concomitant]
  5. LIVIAL [Concomitant]
  6. OMEPRAZOLE [Concomitant]
  7. PARACETAMOL [Concomitant]
  8. IBUPROFEN [Concomitant]

REACTIONS (3)
  - BACK PAIN [None]
  - HAEMATURIA [None]
  - HYPERHIDROSIS [None]
